FAERS Safety Report 7540559-9 (Version None)
Quarter: 2011Q2

REPORT INFORMATION
  Report Type: 
  Country: None (occurrence: None)
  Receive Date: 20110610
  Receipt Date: 20110603
  Transmission Date: 20111010
  Serious: Yes (Other)
  Sender: FDA-Public Use
  Company Number: B0724532A

PATIENT

DRUGS (2)
  1. ALBUTEROL SULFATE [Suspect]
     Route: 055
  2. SERETIDE [Suspect]
     Route: 055

REACTIONS (1)
  - ANGINA PECTORIS [None]
